FAERS Safety Report 6370959-4 (Version None)
Quarter: 2009Q3

REPORT INFORMATION
  Report Type: 
  Country: None (occurrence: None)
  Receive Date: 20090923
  Receipt Date: 20071016
  Transmission Date: 20100115
  Serious: Yes (Hospitalization)
  Sender: FDA-Public Use
  Company Number: US-ASTRAZENECA-2006UW23127

PATIENT
  Age: 20380 Day
  Sex: Female
  Weight: 81.6 kg

DRUGS (13)
  1. SEROQUEL [Suspect]
     Indication: SCHIZOPHRENIA
     Route: 048
     Dates: start: 20020101
  2. SEROQUEL [Suspect]
     Indication: BIPOLAR DISORDER
     Route: 048
     Dates: start: 20020101
  3. SEROQUEL [Suspect]
     Indication: DEPRESSION
     Route: 048
     Dates: start: 20020101
  4. SEROQUEL [Suspect]
     Dosage: DOSE FLUCTUATED FROM 200 MG TO 800 MG
     Route: 048
     Dates: start: 20020108
  5. SEROQUEL [Suspect]
     Dosage: DOSE FLUCTUATED FROM 200 MG TO 800 MG
     Route: 048
     Dates: start: 20020108
  6. SEROQUEL [Suspect]
     Dosage: DOSE FLUCTUATED FROM 200 MG TO 800 MG
     Route: 048
     Dates: start: 20020108
  7. GEODON [Concomitant]
     Dosage: 20 MG TO 120 MG
     Route: 048
     Dates: start: 20030101
  8. GEODON [Concomitant]
     Route: 048
     Dates: start: 20040419
  9. PAXIL [Concomitant]
     Dates: start: 20010101
  10. HYZAAR [Concomitant]
     Indication: HYPERTENSION
     Dosage: 100/25 1QD
     Dates: start: 20010526
  11. NORVASC [Concomitant]
     Indication: HYPERTENSION
     Dates: start: 20010101
  12. RISPERDAL [Concomitant]
     Dosage: 3 MG TO 6 MG
     Dates: start: 20020821, end: 20021211
  13. RISPERDAL [Concomitant]
     Dates: start: 20030414

REACTIONS (4)
  - DIABETES MELLITUS [None]
  - DIABETES MELLITUS INADEQUATE CONTROL [None]
  - HYPERGLYCAEMIA [None]
  - TYPE 2 DIABETES MELLITUS [None]
